FAERS Safety Report 16476438 (Version 6)
Quarter: 2019Q4

REPORT INFORMATION
  Report Type: Report from Study
  Country: None (occurrence: US)
  Receive Date: 20190626
  Receipt Date: 20191204
  Transmission Date: 20200122
  Serious: Yes (Hospitalization, Other)
  Sender: FDA-Public Use
  Company Number: US-ABBVIE-19K-163-2831359-00

PATIENT
  Age: 62 Year
  Sex: Male
  Weight: 115.77 kg

DRUGS (3)
  1. HYDROXYCHLOROQUINE [Suspect]
     Active Substance: HYDROXYCHLOROQUINE
     Indication: RHEUMATOID ARTHRITIS
     Route: 065
  2. PREDNISONE. [Concomitant]
     Active Substance: PREDNISONE
     Indication: RHEUMATOID ARTHRITIS
  3. HUMIRA [Suspect]
     Active Substance: ADALIMUMAB
     Indication: RHEUMATOID ARTHRITIS
     Route: 058
     Dates: start: 2018

REACTIONS (14)
  - Gait disturbance [Unknown]
  - Food allergy [Unknown]
  - Rash [Recovered/Resolved]
  - Swelling [Recovering/Resolving]
  - Peripheral swelling [Not Recovered/Not Resolved]
  - Diarrhoea [Recovered/Resolved]
  - Coeliac disease [Recovering/Resolving]
  - Spinal osteoarthritis [Unknown]
  - Atrial fibrillation [Unknown]
  - Injection site urticaria [Recovered/Resolved]
  - Injection site rash [Recovered/Resolved]
  - Arthralgia [Unknown]
  - Urticaria [Recovered/Resolved]
  - Immobile [Recovering/Resolving]

NARRATIVE: CASE EVENT DATE: 2019
